FAERS Safety Report 7271881-1 (Version None)
Quarter: 2011Q1

REPORT INFORMATION
  Report Type: 
  Country: None (occurrence: None)
  Receive Date: 20110131
  Receipt Date: 20110131
  Transmission Date: 20110831
  Serious: Yes (Hospitalization)
  Sender: FDA-Public Use
  Company Number: None

PATIENT
  Sex: Female
  Weight: 62 kg

DRUGS (3)
  1. OXALIPLATIN [Suspect]
     Indication: RECTAL CANCER
     Dosage: OXALIPLATIN EVERY 2 WEEKS IV
     Dates: start: 20101202
  2. LEUCOVORIN CALCIUM [Suspect]
     Indication: RECTAL CANCER
     Dates: start: 20110114
  3. FLUOROURACIL [Suspect]
     Indication: RECTAL CANCER
     Dates: start: 20101229

REACTIONS (6)
  - URINARY TRACT INFECTION [None]
  - DECREASED APPETITE [None]
  - DEHYDRATION [None]
  - INFECTION [None]
  - DYSGEUSIA [None]
  - NEUTROPHIL COUNT ABNORMAL [None]
